FAERS Safety Report 7768591-0 (Version None)
Quarter: 2011Q3

REPORT INFORMATION
  Report Type: 
  Country: None (occurrence: None)
  Receive Date: 20110922
  Receipt Date: 20110920
  Transmission Date: 20111222
  Serious: Yes (Death, Life-Threatening, Congenital Anomaly, Other)
  Sender: FDA-Public Use
  Company Number: US-ROXANE LABORATORIES, INC.-2011-RO-01319RO

PATIENT
  Age: 67 Day
  Sex: Male
  Weight: 1 kg

DRUGS (2)
  1. MISOPROSTOL [Suspect]
     Indication: MATERNAL EXPOSURE DURING PREGNANCY
     Route: 064
  2. METHOTREXATE [Suspect]
     Indication: MATERNAL EXPOSURE DURING PREGNANCY
     Route: 064

REACTIONS (17)
  - CRYPTORCHISM [None]
  - MICROGNATHIA [None]
  - CLEFT PALATE [None]
  - HAND DEFORMITY [None]
  - TERATOGENICITY [None]
  - DELAYED FONTANELLE CLOSURE [None]
  - STRABISMUS [None]
  - HYPERTELORISM OF ORBIT [None]
  - CLINODACTYLY [None]
  - HOLOPROSENCEPHALY [None]
  - RESPIRATORY FAILURE [None]
  - PULMONARY HYPOPLASIA [None]
  - LOW SET EARS [None]
  - ADACTYLY [None]
  - MUSCULOSKELETAL DEFORMITY [None]
  - BRACHYCEPHALY [None]
  - FOETAL GROWTH RESTRICTION [None]
